FAERS Safety Report 18033994 (Version 1)
Quarter: 2020Q3

REPORT INFORMATION
  Report Type: Spontaneous
  Country: CN (occurrence: CN)
  Receive Date: 20200716
  Receipt Date: 20200716
  Transmission Date: 20201103
  Serious: Yes (Other)
  Sender: FDA-Public Use
  Company Number: CN-FRESENIUS KABI-FK202007203

PATIENT
  Age: 86 Year
  Sex: Female
  Weight: 35 kg

DRUGS (4)
  1. LIPOVENOES MCT 20% [Suspect]
     Active Substance: EGG PHOSPHOLIPIDS\GLYCERIN\MEDIUM-CHAIN TRIGLYCERIDES\SOYBEAN OIL
     Indication: NUTRITIONAL SUPPLEMENTATION
     Dosage: 250 ML QD
     Route: 041
     Dates: start: 20200507, end: 20200507
  2. OCTREOTIDE. [Concomitant]
     Active Substance: OCTREOTIDE
     Indication: HAEMORRHAGE
     Dosage: UNKNOWN
     Route: 065
  3. PERIPLANETA AMERICANA. [Concomitant]
     Active Substance: PERIPLANETA AMERICANA
     Indication: MUCOSAL DISORDER
     Dosage: UNKNOWN
     Route: 065
  4. PANTOPRAZOLE [Concomitant]
     Active Substance: PANTOPRAZOLE
     Indication: ANTACID THERAPY
     Dosage: UNKNOWN
     Route: 065

REACTIONS (4)
  - Chills [Recovered/Resolved]
  - Pyrexia [Recovered/Resolved]
  - Chest discomfort [Recovered/Resolved]
  - Dyspnoea [Recovered/Resolved]

NARRATIVE: CASE EVENT DATE: 20200507
